FAERS Safety Report 21022702 (Version 5)
Quarter: 2023Q1

REPORT INFORMATION
  Report Type: Report from Study
  Country: US (occurrence: US)
  Receive Date: 20220629
  Receipt Date: 20230324
  Transmission Date: 20230418
  Serious: Yes (Hospitalization, Other)
  Sender: FDA-Public Use
  Company Number: US-KOREA IPSEN Pharma-2022-18387

PATIENT
  Age: 60 Year
  Sex: Female

DRUGS (2)
  1. SOMATULINE DEPOT [Suspect]
     Active Substance: LANREOTIDE ACETATE
     Indication: Carcinoid tumour of the small bowel
     Dosage: STRENGTH: 120MG/0.5 ML
     Route: 058
     Dates: start: 2005
  2. SOMATULINE DEPOT [Suspect]
     Active Substance: LANREOTIDE ACETATE
     Dosage: STRENGTH: 120MG/0.5 ML
     Route: 058
     Dates: start: 2005

REACTIONS (21)
  - Optic nerve neoplasm [Recovering/Resolving]
  - Malignant neoplasm progression [Recovering/Resolving]
  - Neuralgia [Unknown]
  - Pain [Recovering/Resolving]
  - Tremor [Recovered/Resolved]
  - Nausea [Recovered/Resolved]
  - Pain [Recovering/Resolving]
  - Blood chromogranin A increased [Recovering/Resolving]
  - Emotional disorder [Recovering/Resolving]
  - Serum serotonin increased [Recovering/Resolving]
  - Impaired gastric emptying [Recovering/Resolving]
  - Product administration interrupted [Unknown]
  - Malabsorption [Recovering/Resolving]
  - Sciatic nerve injury [Recovered/Resolved]
  - Blood calcium decreased [Recovering/Resolving]
  - Blood magnesium decreased [Recovering/Resolving]
  - Depression [Recovering/Resolving]
  - Wrong technique in product usage process [Unknown]
  - Back pain [Recovered/Resolved]
  - Hypoparathyroidism [Recovering/Resolving]
  - Off label use [Unknown]
